FAERS Safety Report 8292950-3 (Version None)
Quarter: 2012Q2

REPORT INFORMATION
  Report Type: 
  Country: None (occurrence: None)
  Receive Date: 20120417
  Receipt Date: 20110826
  Transmission Date: 20120825
  Serious: No
  Sender: FDA-Public Use
  Company Number: US-ASTRAZENECA-2011SE51529

PATIENT
  Sex: Female

DRUGS (4)
  1. ATENOLOL [Concomitant]
  2. WELLBUTRIN [Concomitant]
  3. NEXIUM [Suspect]
     Indication: OESOPHAGEAL DISORDER
     Dosage: EVERY DAY
     Route: 048
     Dates: start: 20070101
  4. NEXIUM [Suspect]
     Indication: DYSPHAGIA
     Dosage: EVERY DAY
     Route: 048
     Dates: start: 20070101

REACTIONS (2)
  - ARTHRALGIA [None]
  - OFF LABEL USE [None]
